FAERS Safety Report 5259061-2 (Version None)
Quarter: 2007Q1

REPORT INFORMATION
  Report Type: 
  Country: None (occurrence: None)
  Receive Date: 20070308
  Receipt Date: 20070227
  Transmission Date: 20070707
  Serious: Yes (Death)
  Sender: FDA-Public Use
  Company Number: TN-PFIZER INC-2007015316

PATIENT
  Age: 68 Year
  Sex: Female

DRUGS (3)
  1. CELECOXIB [Suspect]
     Indication: OSTEOARTHRITIS
     Route: 048
  2. DEXTROPROPOXIFEN [Concomitant]
     Route: 048
  3. ACETAMINOPHEN [Concomitant]
     Route: 048

REACTIONS (1)
  - SUDDEN DEATH [None]
